FAERS Safety Report 8372951-7 (Version None)
Quarter: 2012Q2

REPORT INFORMATION
  Report Type: 
  Country: None (occurrence: None)
  Receive Date: 20120521
  Receipt Date: 20110303
  Transmission Date: 20120825
  Serious: No
  Sender: FDA-Public Use
  Company Number: US-ASTRAZENECA-2011SE18690

PATIENT
  Sex: Female

DRUGS (4)
  1. METFORMIN HCL [Concomitant]
     Dosage: UNKNOWN
  2. PRILOSEC OTC [Suspect]
     Route: 048
     Dates: start: 20101201, end: 20110201
  3. ACIPHEX [Suspect]
     Dosage: UNKNOWN
  4. NEURONTIN [Concomitant]
     Dosage: UNKNOWN

REACTIONS (2)
  - INCORRECT DRUG ADMINISTRATION DURATION [None]
  - NAUSEA [None]
